FAERS Safety Report 9511522 (Version 1)
Quarter: 2013Q1

REPORT INFORMATION
  Report Type: Spontaneous
  Country: US (occurrence: None)
  Receive Date: 20130305
  Receipt Date: 20130305
  Transmission Date: 20140127
  Serious: Yes (Other)
  Sender: FDA-Public Use
  Company Number: 163-21880-12051972

PATIENT
  Age: 70 Year
  Sex: Male
  Weight: 102.06 kg

DRUGS (5)
  1. REVLIMID [Suspect]
     Indication: PLASMA CELL MYELOMA
     Dosage: 10 MG, 1 IN 1 D, PO
     Route: 048
     Dates: start: 2011
  2. REVLIMID [Concomitant]
     Dates: start: 2011
  3. DEXAMETHASONE (DEXAMETHASONE) [Concomitant]
  4. MELPHALAN [Concomitant]
  5. LORAZEPAM (LORAZEPAM) [Concomitant]

REACTIONS (6)
  - Platelet count decreased [None]
  - White blood cell count decreased [None]
  - Formication [None]
  - Oedema mouth [None]
  - Constipation [None]
  - No therapeutic response [None]
